FAERS Safety Report 5260032-0 (Version None)
Quarter: 2007Q1

REPORT INFORMATION
  Report Type: 
  Country: None (occurrence: None)
  Receive Date: 20070309
  Receipt Date: 20060214
  Transmission Date: 20070707
  Serious: No
  Sender: FDA-Public Use
  Company Number: US-GLAXOSMITHKLINE-A0592999A

PATIENT
  Age: 14 Year
  Sex: Male

DRUGS (5)
  1. NICORETTE [Suspect]
     Dates: start: 20060208
  2. LEXAPRO [Concomitant]
     Dosage: 5MG PER DAY
  3. ADDERALL XR 10 [Concomitant]
     Dosage: 30MG PER DAY
  4. CLONIDINE [Concomitant]
     Indication: INSOMNIA
  5. ADDERALL 10 [Concomitant]

REACTIONS (4)
  - HEART RATE INCREASED [None]
  - INTENTIONAL DRUG MISUSE [None]
  - OVERDOSE [None]
  - PALPITATIONS [None]
